FAERS Safety Report 11765184 (Version 1)
Quarter: 2015Q4

REPORT INFORMATION
  Report Type: Spontaneous
  Country: US (occurrence: US)
  Receive Date: 20151120
  Receipt Date: 20151120
  Transmission Date: 20160304
  Serious: No
  Sender: FDA-Public Use
  Company Number: US-ELI_LILLY_AND_COMPANY-US201312006350

PATIENT
  Age: 31 Year
  Sex: Male

DRUGS (15)
  1. FORTEO [Suspect]
     Active Substance: TERIPARATIDE
     Dosage: UNK UNK, TID
     Route: 065
  2. FORTEO [Suspect]
     Active Substance: TERIPARATIDE
     Indication: BLOOD CALCIUM ABNORMAL
     Dosage: UNK, QD
     Route: 065
     Dates: start: 20131004
  3. TACROLIMUS. [Concomitant]
     Active Substance: TACROLIMUS
  4. CALCIUM CITRATE [Concomitant]
     Active Substance: CALCIUM CITRATE
  5. CLONIDINE. [Concomitant]
     Active Substance: CLONIDINE
  6. OMEPRAZOLE. [Concomitant]
     Active Substance: OMEPRAZOLE
  7. BACTRIM [Concomitant]
     Active Substance: SULFAMETHOXAZOLE\TRIMETHOPRIM
  8. VALCYTE [Concomitant]
     Active Substance: VALGANCICLOVIR HYDROCHLORIDE
  9. AMBIEN [Concomitant]
     Active Substance: ZOLPIDEM TARTRATE
  10. CALCITRIOL. [Concomitant]
     Active Substance: CALCITRIOL
  11. MAGNESIUM [Concomitant]
     Active Substance: MAGNESIUM
  12. RENVELA [Concomitant]
     Active Substance: SEVELAMER CARBONATE
  13. PREDNISONE. [Concomitant]
     Active Substance: PREDNISONE
  14. LABETALOL [Concomitant]
     Active Substance: LABETALOL\LABETALOL HYDROCHLORIDE
  15. MYFORTIC [Concomitant]
     Active Substance: MYCOPHENOLATE SODIUM

REACTIONS (3)
  - Off label use [Not Recovered/Not Resolved]
  - Blood calcium decreased [Recovering/Resolving]
  - Prescribed overdose [Unknown]

NARRATIVE: CASE EVENT DATE: 20131004
